FAERS Safety Report 24291450 (Version 1)
Quarter: 2024Q3

REPORT INFORMATION
  Report Type: Spontaneous
  Country: US (occurrence: None)
  Receive Date: 20240906
  Receipt Date: 20240906
  Transmission Date: 20241016
  Serious: No
  Sender: DOMPE FARMACEUTICI
  Company Number: US-FARMAPROD-202309-2642

PATIENT
  Age: 35 Year
  Sex: Female

DRUGS (13)
  1. OXERVATE [Suspect]
     Active Substance: CENEGERMIN-BKBJ
     Indication: Neurotrophic keratopathy
     Route: 047
     Dates: start: 20230812, end: 20230914
  2. OXERVATE [Suspect]
     Active Substance: CENEGERMIN-BKBJ
     Route: 047
     Dates: start: 20231018, end: 202312
  3. OXERVATE [Suspect]
     Active Substance: CENEGERMIN-BKBJ
  4. BOTOX [Concomitant]
     Active Substance: ONABOTULINUMTOXINA
     Dosage: VIAL
  5. MIRENA [Concomitant]
     Active Substance: LEVONORGESTREL
     Dosage: 21 MCG / 24 HOUR
  6. SYSTANE (HYPROMELLOSE 2910 (4000 MPA.S)) [Concomitant]
     Active Substance: HYPROMELLOSE 2910 (4000 MPA.S)
     Dosage: 3 %-94 %
  7. REFRESH RELIEVA PF [Concomitant]
     Active Substance: CARBOXYMETHYLCELLULOSE SODIUM\GLYCERIN
     Dosage: 0.5 %-0.9%
  8. EFFEXOR XR [Concomitant]
     Active Substance: VENLAFAXINE HYDROCHLORIDE
     Dosage: 24 HOURS
  9. CLONIDINE HYDROCHLORIDE [Concomitant]
     Active Substance: CLONIDINE HYDROCHLORIDE
  10. LINZESS [Concomitant]
     Active Substance: LINACLOTIDE
  11. LYRICA [Concomitant]
     Active Substance: PREGABALIN
  12. BENADRYL [Concomitant]
     Active Substance: DIPHENHYDRAMINE HYDROCHLORIDE
  13. IBUPROFEN [Concomitant]
     Active Substance: IBUPROFEN

REACTIONS (8)
  - Migraine [Unknown]
  - Sinusitis [Unknown]
  - Toothache [Unknown]
  - Upper respiratory tract infection [Unknown]
  - Eye irritation [Unknown]
  - Ocular discomfort [Unknown]
  - Disease recurrence [Recovered/Resolved with Sequelae]
  - Drug ineffective [Recovered/Resolved]

NARRATIVE: CASE EVENT DATE: 20230801
